FAERS Safety Report 16449620 (Version 1)
Quarter: 2019Q2

REPORT INFORMATION
  Report Type: Spontaneous
  Country: US (occurrence: US)
  Receive Date: 20190619
  Receipt Date: 20190619
  Transmission Date: 20190711
  Serious: Yes (Other)
  Sender: FDA-Public Use
  Company Number: US-ELI_LILLY_AND_COMPANY-US201906005982

PATIENT
  Sex: Male

DRUGS (1)
  1. HUMALOG [Suspect]
     Active Substance: INSULIN LISPRO
     Indication: DIABETES MELLITUS
     Dosage: BASAL RATE 60, BOLUS 1U PER 10 CARBS (PRN)
     Route: 058

REACTIONS (3)
  - Lower limb fracture [Not Recovered/Not Resolved]
  - Accident at work [Not Recovered/Not Resolved]
  - Fall [Not Recovered/Not Resolved]
